FAERS Safety Report 5105196-4 (Version None)
Quarter: 2006Q3

REPORT INFORMATION
  Report Type: 
  Country: None (occurrence: None)
  Receive Date: 20060911
  Receipt Date: 20060828
  Transmission Date: 20061208
  Serious: Yes (Other)
  Sender: FDA-Public Use
  Company Number: 2006106181

PATIENT
  Age: 60 Year
  Sex: Female
  Weight: 104.3273 kg

DRUGS (14)
  1. LYRICA [Suspect]
     Indication: DIABETIC NEUROPATHY
     Dosage: 150 MG (75 MG,2 IN 1 D), ORAL
     Route: 048
     Dates: start: 20060101
  2. METFORMIN [Concomitant]
  3. LIPITOR [Concomitant]
  4. ZETIA [Concomitant]
  5. NPH INSULIN [Concomitant]
  6. AVALIDE (HYDROCHLORTHIAZIDE, IRBESARTAN) [Concomitant]
  7. OXYCODONE HCL [Concomitant]
  8. FOLIC ACID [Concomitant]
  9. VOLTAREN [Concomitant]
  10. MULTIVITAMIN [Concomitant]
  11. CALCIUM GLUCONATE [Concomitant]
  12. ALTACE [Concomitant]
  13. FUROSEMIDE [Concomitant]
  14. METROCREAM [Concomitant]

REACTIONS (5)
  - ANAEMIA [None]
  - BLISTER [None]
  - OEDEMA [None]
  - VISION BLURRED [None]
  - WEIGHT INCREASED [None]
